FAERS Safety Report 8247226-7 (Version None)
Quarter: 2012Q1

REPORT INFORMATION
  Report Type: 
  Country: None (occurrence: None)
  Receive Date: 20120330
  Receipt Date: 20120319
  Transmission Date: 20120608
  Serious: Yes (Hospitalization)
  Sender: FDA-Public Use
  Company Number: US-SANOFI-AVENTIS-2012SA019230

PATIENT
  Age: 69 Year
  Sex: Male

DRUGS (11)
  1. LANTUS [Concomitant]
  2. ALLOPURINOL [Concomitant]
  3. FUROSEMIDE [Concomitant]
  4. AMLODIPINE [Concomitant]
  5. METOPROLOL SUCCINATE [Concomitant]
  6. HYDRALAZINE HCL [Concomitant]
  7. AMARYL [Suspect]
     Indication: DIABETES MELLITUS
  8. LISINOPRIL [Concomitant]
  9. ZOCOR [Concomitant]
  10. ASPIRIN [Concomitant]
  11. PEPCID [Concomitant]

REACTIONS (2)
  - BLOOD GLUCOSE INCREASED [None]
  - CARDIAC FAILURE [None]
